FAERS Safety Report 23131380 (Version 1)
Quarter: 2023Q4

REPORT INFORMATION
  Report Type: Report from Study
  Country: CA (occurrence: CA)
  Receive Date: 20231031
  Receipt Date: 20231031
  Transmission Date: 20240109
  Serious: Yes (Other)
  Sender: FDA-Public Use
  Company Number: CA-TEVA-2023-CA-2941297

PATIENT
  Age: 41 Year
  Sex: Female

DRUGS (3)
  1. AJOVY [Suspect]
     Active Substance: FREMANEZUMAB-VFRM
     Indication: Migraine prophylaxis
     Dosage: FORM STRENGTH AND UNIT DOSE: 225MILLIGRAM, 225MG MONTHLY,
     Route: 058
     Dates: start: 2022
  2. AIMOVIG [Suspect]
     Active Substance: ERENUMAB-AOOE
     Indication: Migraine
     Route: 065
     Dates: start: 2022, end: 2022
  3. CANDESARTAN [Concomitant]
     Active Substance: CANDESARTAN
     Indication: Product used for unknown indication

REACTIONS (14)
  - Immunosuppression [Unknown]
  - Oral herpes [Unknown]
  - Rash [Unknown]
  - Hordeolum [Unknown]
  - Blepharitis [Unknown]
  - Chalazion [Unknown]
  - Influenza [Unknown]
  - Nasopharyngitis [Unknown]
  - COVID-19 [Unknown]
  - Illness [Unknown]
  - Gingivitis ulcerative [Unknown]
  - Fatigue [Unknown]
  - Erythema [Unknown]
  - Skin discolouration [Unknown]

NARRATIVE: CASE EVENT DATE: 20220101
